FAERS Safety Report 8153086-5 (Version None)
Quarter: 2012Q1

REPORT INFORMATION
  Report Type: 
  Country: None (occurrence: None)
  Receive Date: 20120221
  Receipt Date: 20120213
  Transmission Date: 20120608
  Serious: Yes (Hospitalization)
  Sender: FDA-Public Use
  Company Number: US-ASTELLAS-2012US000962

PATIENT
  Age: 72 Year
  Sex: Female

DRUGS (24)
  1. SYMBICORT [Concomitant]
     Indication: PRODUCT USED FOR UNKNOWN INDICATION
     Dosage: 2 DF, BID PRN
     Route: 048
  2. AMBIEN [Concomitant]
     Indication: PRODUCT USED FOR UNKNOWN INDICATION
     Dosage: 12.5 MG, QHS
     Route: 065
  3. LORAZEPAM [Concomitant]
     Indication: PRODUCT USED FOR UNKNOWN INDICATION
     Dosage: 1/2  TO 1 TABLET, PRN
     Route: 048
  4. TRAMADOL HCL [Concomitant]
     Indication: PAIN
     Dosage: 1-2 TABLET, 50 MG, Q6 HOURS
     Route: 048
  5. MEGACE [Concomitant]
     Indication: APPETITE DISORDER
     Dosage: 40 MG/ML, UID/QD
     Route: 048
  6. MEGACE [Concomitant]
     Dosage: 800 MG, UID/QD
     Route: 048
  7. ULTRAM [Concomitant]
     Dosage: 20 MG, UID/QD
     Route: 065
  8. SPRYCEL [Suspect]
     Dosage: 20 MG, UID/QD
     Route: 048
     Dates: start: 20111223, end: 20120124
  9. VENTOLIN HFA [Concomitant]
     Indication: PRODUCT USED FOR UNKNOWN INDICATION
     Dosage: 1 DF, PRN
     Route: 048
  10. IMODIUM [Concomitant]
     Indication: DIARRHOEA
     Dosage: 2 MG, PRN
     Route: 065
  11. BENADRYL [Concomitant]
     Indication: PRURITUS
     Dosage: 1-2 CAPSULE, PRN
     Route: 048
  12. CENTRUM [Concomitant]
     Indication: PRODUCT USED FOR UNKNOWN INDICATION
     Dosage: 1 DF, UID/QD
     Route: 048
  13. CLINDAMYCIN [Concomitant]
     Indication: RASH
     Dosage: 1 %, BID/PRN
     Route: 061
  14. IRON [Concomitant]
     Indication: PRODUCT USED FOR UNKNOWN INDICATION
     Dosage: 65 MG, UID/QD
     Route: 048
  15. SINGULAIR [Concomitant]
     Indication: HYPERSENSITIVITY
     Dosage: 10 MG, QHS
     Route: 048
  16. ZOFRAN [Concomitant]
     Indication: NAUSEA
     Dosage: 8 MG, PRN
     Route: 048
  17. KETOTIFEN FUMARATE [Concomitant]
     Indication: EYE DISORDER
     Dosage: 2 DF, BID
     Route: 047
  18. ERLOTINIB HYDROCHLORIDE [Suspect]
     Indication: LUNG NEOPLASM MALIGNANT
     Dosage: 150 MG, UID/QD
     Route: 048
     Dates: start: 20111223, end: 20120124
  19. SPRYCEL [Suspect]
     Indication: LUNG NEOPLASM MALIGNANT
     Dosage: 50 MG, UID/QD
     Route: 048
     Dates: start: 20111223, end: 20120124
  20. ALBUTEROL [Concomitant]
     Indication: PRODUCT USED FOR UNKNOWN INDICATION
     Dosage: 1 DF, PRN
     Route: 045
  21. LISINOPRIL [Concomitant]
     Indication: BLOOD PRESSURE
     Dosage: 20 MG, UID/QD
     Route: 048
  22. ZOFRAN [Concomitant]
     Indication: VOMITING
     Dosage: 4 MG, Q8 HOURS PRN
     Route: 048
  23. ZOLPIDEM [Concomitant]
     Indication: SLEEP DISORDER
     Dosage: 12.5 MG, QHS
     Route: 048
  24. ULTRAM [Concomitant]
     Indication: PAIN
     Dosage: 50 MG, 1-2 TABLETS, Q6 HOURS PRN
     Route: 065

REACTIONS (8)
  - INTERNATIONAL NORMALISED RATIO DECREASED [None]
  - DYSPNOEA [None]
  - HYPOXIA [None]
  - HAEMOGLOBIN DECREASED [None]
  - HAEMATOCRIT DECREASED [None]
  - PLEURISY [None]
  - PNEUMONIA [None]
  - NAUSEA [None]
